FAERS Safety Report 13583896 (Version 2)
Quarter: 2017Q3

REPORT INFORMATION
  Report Type: Spontaneous
  Country: US (occurrence: US)
  Receive Date: 20170526
  Receipt Date: 20170920
  Transmission Date: 20171127
  Serious: No
  Sender: FDA-Public Use
  Company Number: US-ASTRAZENECA-2017SE52585

PATIENT
  Sex: Female
  Weight: 52.2 kg

DRUGS (4)
  1. BRILINTA [Suspect]
     Active Substance: TICAGRELOR
     Indication: MYOCARDIAL INFARCTION
     Route: 048
     Dates: start: 201704
  2. EFFIENT [Concomitant]
     Active Substance: PRASUGREL HYDROCHLORIDE
  3. BRILINTA [Suspect]
     Active Substance: TICAGRELOR
     Indication: STENT PLACEMENT
     Route: 048
     Dates: start: 201704
  4. ASPIRIN. [Concomitant]
     Active Substance: ASPIRIN
     Indication: MYOCARDIAL INFARCTION
     Route: 048

REACTIONS (4)
  - Fatigue [Unknown]
  - Circumstance or information capable of leading to medication error [Unknown]
  - Dyspnoea [Not Recovered/Not Resolved]
  - Total lung capacity abnormal [Not Recovered/Not Resolved]
